FAERS Safety Report 12736887 (Version 2)
Quarter: 2016Q3

REPORT INFORMATION
  Report Type: Report from Study
  Country: CN (occurrence: CN)
  Receive Date: 20160913
  Receipt Date: 20160923
  Transmission Date: 20161109
  Serious: Yes (Hospitalization)
  Sender: FDA-Public Use
  Company Number: CN-ASTRAZENECA-2016SE95286

PATIENT
  Age: 23881 Day
  Sex: Female
  Weight: 66 kg

DRUGS (7)
  1. IRESSA [Suspect]
     Active Substance: GEFITINIB
     Indication: LUNG ADENOCARCINOMA
     Route: 048
     Dates: start: 20160810, end: 20160820
  2. CARBOPLATIN. [Suspect]
     Active Substance: CARBOPLATIN
     Indication: LUNG ADENOCARCINOMA
     Route: 042
     Dates: start: 20160727, end: 20160727
  3. GEMCITABINE [Suspect]
     Active Substance: GEMCITABINE\GEMCITABINE HYDROCHLORIDE
     Indication: LUNG ADENOCARCINOMA
     Route: 042
     Dates: start: 20160727, end: 20160727
  4. IRBESARTAN. [Concomitant]
     Active Substance: IRBESARTAN
     Route: 048
     Dates: start: 1990
  5. ACARBOSE. [Concomitant]
     Active Substance: ACARBOSE
     Route: 048
     Dates: start: 2004
  6. GEMCITABINE [Suspect]
     Active Substance: GEMCITABINE\GEMCITABINE HYDROCHLORIDE
     Indication: LUNG ADENOCARCINOMA
     Route: 042
     Dates: start: 20160803, end: 20160803
  7. INSULIN ASPART [Concomitant]
     Active Substance: INSULIN ASPART
     Dates: start: 2004

REACTIONS (1)
  - Platelet count increased [Recovered/Resolved]

NARRATIVE: CASE EVENT DATE: 20160807
